FAERS Safety Report 9414382 (Version 1)
Quarter: 2013Q3

REPORT INFORMATION
  Report Type: Spontaneous
  Country: US (occurrence: US)
  Receive Date: 20130723
  Receipt Date: 20130723
  Transmission Date: 20140515
  Serious: Yes (Hospitalization)
  Sender: FDA-Public Use
  Company Number: US-TEVA-360448USA

PATIENT
  Sex: 0

DRUGS (1)
  1. GABITRIL [Suspect]
     Route: 048

REACTIONS (2)
  - Hypokalaemia [Unknown]
  - Hypoglycaemia [Unknown]
